FAERS Safety Report 4383229-0 (Version None)
Quarter: 2004Q2

REPORT INFORMATION
  Report Type: 
  Country: None (occurrence: None)
  Receive Date: 20040618
  Receipt Date: 20040610
  Transmission Date: 20050107
  Serious: Yes (Other)
  Sender: FDA-Public Use
  Company Number: 200412888BCC

PATIENT
  Age: 71 Year
  Sex: Female
  Weight: 71.2147 kg

DRUGS (3)
  1. ALEVE [Suspect]
     Indication: ARTHRITIS
     Dosage: 220 MG, QD, ORAL
     Route: 048
  2. ALEVE [Suspect]
     Indication: PAIN
     Dosage: 220 MG, QD, ORAL
     Route: 048
  3. METOPROLOL TARTRATE [Concomitant]

REACTIONS (1)
  - BLOOD PRESSURE INCREASED [None]
